FAERS Safety Report 5038134-3 (Version None)
Quarter: 2006Q2

REPORT INFORMATION
  Report Type: 
  Country: None (occurrence: None)
  Receive Date: 20060626
  Receipt Date: 20060616
  Transmission Date: 20061013
  Serious: No
  Sender: FDA-Public Use
  Company Number: TPA2004A00285

PATIENT
  Age: 65 Year
  Sex: Female

DRUGS (9)
  1. ACTOS [Suspect]
     Indication: DIABETES MELLITUS
     Dosage: 30 MG, 1 IN 1 D, PER ORAL
     Route: 048
     Dates: end: 20020701
  2. INSULIN [Concomitant]
  3. AMARYL [Concomitant]
  4. HUMALOG PEN (INSULIN LISPRO) (3 MILLILITRE (S)) [Concomitant]
  5. LANTUS (INSULIN GLARGINE) (45 IU (INTERNATIONAL UNIT)) [Concomitant]
  6. COZAAR (LOSARTAN POTASSIUM) (25 MILLIGRAM) [Concomitant]
  7. LIPITOR [Concomitant]
  8. LEVOXYL (LEVOTHYROXINE SODIUM) (100 MICROGRAM) [Concomitant]
  9. NEURONTIN (GABAPENTIN) (100 MILLIGRAM) [Concomitant]

REACTIONS (3)
  - MACULAR OEDEMA [None]
  - RETINAL ANEURYSM [None]
  - WEIGHT INCREASED [None]
